FAERS Safety Report 23700742 (Version 3)
Quarter: 2024Q2

REPORT INFORMATION
  Report Type: Spontaneous
  Country: JP (occurrence: JP)
  Receive Date: 20240403
  Receipt Date: 20240507
  Transmission Date: 20240715
  Serious: Yes (Death, Other)
  Sender: FDA-Public Use
  Company Number: JP-VERICEL-JP-VCEL-24-000084

PATIENT
  Age: 90 Year
  Sex: Male

DRUGS (2)
  1. BROMELAINS [Suspect]
     Active Substance: BROMELAINS
     Indication: Thermal burn
     Dosage: 30 GRAM
     Route: 061
     Dates: start: 20231116, end: 20231116
  2. BROMELAINS [Suspect]
     Active Substance: BROMELAINS
     Dosage: 30 GRAM
     Route: 061
     Dates: start: 20231120, end: 20231120

REACTIONS (1)
  - Systemic candida [Fatal]

NARRATIVE: CASE EVENT DATE: 20240125
